FAERS Safety Report 9669246 (Version 4)
Quarter: 2014Q1

REPORT INFORMATION
  Report Type: Spontaneous
  Country: GB (occurrence: None)
  Receive Date: 20131101
  Receipt Date: 20140210
  Transmission Date: 20141002
  Serious: Yes (Disabling, Other)
  Sender: FDA-Public Use
  Company Number: AUR-APL-2013-08958

PATIENT
  Age: 29 Year
  Sex: Male
  Weight: 65 kg

DRUGS (2)
  1. SUMATRIPTAN [Suspect]
     Indication: MIGRAINE
     Dosage: AS REQUIRED
     Route: 048
     Dates: start: 20131002, end: 20131012
  2. PARACETAMOL (PARACETAMOL) [Concomitant]

REACTIONS (17)
  - Migraine [None]
  - Anxiety [None]
  - Agitation [None]
  - Aggression [None]
  - Fatigue [None]
  - Drug ineffective [None]
  - Product quality issue [None]
  - Condition aggravated [None]
  - Insomnia [None]
  - Irritability [None]
  - Decreased appetite [None]
  - Decreased activity [None]
  - Nausea [None]
  - Product substitution issue [None]
  - Product substitution issue [None]
  - Pain [None]
  - Ill-defined disorder [None]
